FAERS Safety Report 4832927-0 (Version None)
Quarter: 2005Q4

REPORT INFORMATION
  Report Type: 
  Country: None (occurrence: None)
  Receive Date: 20051121
  Receipt Date: 20050929
  Transmission Date: 20060501
  Serious: Yes (Death, Hospitalization)
  Sender: FDA-Public Use
  Company Number: US-MERCK-0510USA00290

PATIENT
  Age: 74 Year
  Sex: Female
  Weight: 61 kg

DRUGS (11)
  1. VIOXX [Suspect]
     Indication: ARTHRITIS
     Route: 048
     Dates: start: 20030522, end: 20041201
  2. METOLAZONE [Concomitant]
     Route: 065
  3. PREMARIN [Concomitant]
     Route: 065
  4. LESCOL [Concomitant]
     Route: 065
  5. COUMADIN [Concomitant]
     Route: 065
  6. PLAVIX [Concomitant]
     Route: 065
  7. ATENOLOL [Concomitant]
     Route: 065
  8. ASPIRIN [Concomitant]
     Route: 065
  9. NEXIUM [Concomitant]
     Route: 065
  10. ZAROXOLYN [Concomitant]
     Route: 065
  11. POTASSIUM (UNSPECIFIED) [Concomitant]
     Route: 065

REACTIONS (6)
  - ATRIAL FIBRILLATION [None]
  - CEREBROVASCULAR ACCIDENT [None]
  - DEATH [None]
  - HYPOAESTHESIA [None]
  - HYPOAESTHESIA ORAL [None]
  - THROMBOSIS [None]
